FAERS Safety Report 10423851 (Version 1)
Quarter: 2014Q3

REPORT INFORMATION
  Report Type: Spontaneous
  Country: GB (occurrence: GB)
  Receive Date: 20140902
  Receipt Date: 20140902
  Transmission Date: 20150326
  Serious: Yes (Other)
  Sender: FDA-Public Use
  Company Number: GB-WATSON-2014-18918

PATIENT
  Age: 65 Year
  Sex: Male
  Weight: 67 kg

DRUGS (1)
  1. AMLODIPINE [Suspect]
     Active Substance: AMLODIPINE BESYLATE
     Indication: PRODUCT USED FOR UNKNOWN INDICATION
     Dosage: UNK
     Route: 065
     Dates: start: 20140612, end: 20140710

REACTIONS (1)
  - Joint swelling [Recovering/Resolving]

NARRATIVE: CASE EVENT DATE: 20140701
